FAERS Safety Report 24124345 (Version 3)
Quarter: 2024Q3

REPORT INFORMATION
  Report Type: Spontaneous
  Country: IT (occurrence: IT)
  Receive Date: 20240723
  Receipt Date: 20240729
  Transmission Date: 20241016
  Serious: Yes (Death)
  Sender: BIOVITRUM
  Company Number: IT-BIOVITRUM-2024-IT-010105

PATIENT
  Age: 47 Year
  Sex: Male
  Weight: 85 kg

DRUGS (1)
  1. GAMIFANT [Suspect]
     Active Substance: EMAPALUMAB-LZSG
     Indication: Haemophagocytic lymphohistiocytosis
     Route: 042
     Dates: start: 20240718, end: 20240720

REACTIONS (1)
  - Disease progression [Fatal]

NARRATIVE: CASE EVENT DATE: 20240720
